FAERS Safety Report 20670529 (Version 1)
Quarter: 2022Q2

REPORT INFORMATION
  Report Type: Report from Study
  Country: US (occurrence: US)
  Receive Date: 20220404
  Receipt Date: 20220404
  Transmission Date: 20220720
  Serious: Yes (Other)
  Sender: FDA-Public Use
  Company Number: US-UCBSA-2022017826

PATIENT
  Age: 31 Year
  Sex: Female
  Weight: 73.9 kg

DRUGS (12)
  1. CERTOLIZUMAB PEGOL [Suspect]
     Active Substance: CERTOLIZUMAB PEGOL
     Indication: Psoriatic arthropathy
     Dosage: 400 MILLIGRAM, EV 2 WEEKS(QOW)
     Dates: start: 20200425, end: 20200523
  2. CERTOLIZUMAB PEGOL [Suspect]
     Active Substance: CERTOLIZUMAB PEGOL
     Dosage: 400 MILLIGRAM, MONTHLY (QM)
     Dates: start: 20200620, end: 20210120
  3. MINERALS\VITAMINS [Concomitant]
     Active Substance: MINERALS\VITAMINS
     Indication: Product used for unknown indication
     Dosage: 2 DOSAGE FORM, ONCE DAILY (QD)
     Route: 048
     Dates: start: 20191215, end: 20210120
  4. PROBIOTICS NOS [Concomitant]
     Active Substance: PROBIOTICS NOS
     Indication: Nutritional supplementation
     Dosage: 1 DOSAGE FORM, ONCE DAILY (QD)
     Route: 048
     Dates: start: 20200401, end: 20210120
  5. PREVACID [Concomitant]
     Active Substance: LANSOPRAZOLE
     Indication: Gastrooesophageal reflux disease
     Dosage: 1 DOSAGE FORM, ONCE DAILY (QD)
     Route: 048
     Dates: start: 20201008, end: 20210120
  6. TUMS [Concomitant]
     Active Substance: CALCIUM CARBONATE
     Indication: Gastrooesophageal reflux disease
     Dosage: 3 DOSAGE FORM, 2 WK
     Route: 048
     Dates: start: 20200401, end: 20200731
  7. TUMS [Concomitant]
     Active Substance: CALCIUM CARBONATE
     Dosage: 4.5 PILL
     Route: 048
     Dates: start: 20200801, end: 20201007
  8. TYLENOL [Concomitant]
     Active Substance: ACETAMINOPHEN
     Indication: Headache
     Dosage: 2 DOSAGE FORM, WEEKLY (QW)
     Route: 048
     Dates: start: 20200401, end: 20200625
  9. ZINC [Concomitant]
     Active Substance: ZINC
     Indication: Acne
     Dosage: UNK
     Dates: start: 20200401, end: 20210120
  10. INFLUENZA VIRUS VACCINE [Concomitant]
     Active Substance: INFLUENZA VIRUS VACCINE
     Indication: Product used for unknown indication
     Dosage: UNK
     Route: 030
     Dates: start: 20201008, end: 20201008
  11. FISH OIL [Concomitant]
     Active Substance: FISH OIL
     Indication: Pregnancy
     Dosage: 1200 MILLIGRAM, ONCE DAILY (QD)
     Route: 048
     Dates: start: 20200401, end: 20210120
  12. TETANUS TOXOID, REDUCED DIPHTHERIA TOXOID AND ACELLULAR PERTUSSIS VACC [Concomitant]
     Active Substance: TETANUS TOXOID, REDUCED DIPHTHERIA TOXOID AND ACELLULAR PERTUSSIS VACCINE ADSORBED, TDAP
     Indication: Product used for unknown indication
     Dosage: 1 SHOT, 1 DAY
     Route: 048
     Dates: start: 20201008, end: 20201008

REACTIONS (6)
  - Prolonged pregnancy [Unknown]
  - Caesarean section [Unknown]
  - Maternal exposure during pregnancy [Unknown]
  - Gastrooesophageal reflux disease [Unknown]
  - Headache [Unknown]
  - Acne [Unknown]

NARRATIVE: CASE EVENT DATE: 20200425
